FAERS Safety Report 8216488-4 (Version None)
Quarter: 2012Q1

REPORT INFORMATION
  Report Type: 
  Country: None (occurrence: None)
  Receive Date: 20120316
  Receipt Date: 20120312
  Transmission Date: 20120608
  Serious: Yes (Life-Threatening, Hospitalization, Other)
  Sender: FDA-Public Use
  Company Number: DE-ELI_LILLY_AND_COMPANY-DE201203003301

PATIENT
  Age: 66 Year
  Sex: Male
  Weight: 100 kg

DRUGS (7)
  1. DIOVAN [Concomitant]
     Dosage: UNK, UNKNOWN
  2. ASPIRIN [Concomitant]
     Dosage: UNK, UNKNOWN
  3. BYDUREON [Suspect]
     Indication: TYPE 2 DIABETES MELLITUS
     Dosage: 2 MG, WEEKLY (1/W)
     Route: 058
     Dates: start: 20120205
  4. SIMVASTATIN [Concomitant]
     Dosage: UNK, UNKNOWN
  5. AMLODIPINE [Concomitant]
     Dosage: UNK, UNKNOWN
  6. METFORMIN HYDROCHLORIDE [Concomitant]
     Indication: DIABETES MELLITUS
     Dosage: UNK, UNKNOWN
     Route: 048
  7. VALSARTAN [Concomitant]
     Dosage: UNK, UNKNOWN

REACTIONS (1)
  - RASH GENERALISED [None]
